FAERS Safety Report 21802097 (Version 1)
Quarter: 2022Q4

REPORT INFORMATION
  Report Type: Report from Study
  Country: US (occurrence: US)
  Receive Date: 20221230
  Receipt Date: 20221230
  Transmission Date: 20230112
  Serious: No
  Sender: FDA-Public Use
  Company Number: US-ACORDA-ACO_172101_2022

PATIENT
  Sex: Male

DRUGS (3)
  1. INBRIJA [Suspect]
     Active Substance: LEVODOPA
     Indication: Parkinson^s disease
     Dosage: 84 MILLIGRAM, PRN(NOT TO EXCEED 5 DOSES PER DAY)
  2. INBRIJA [Suspect]
     Active Substance: LEVODOPA
     Indication: On and off phenomenon
     Dosage: 84 MILLIGRAM, PRN(NOT TO EXCEED 5 DOSES PER DAY)
  3. CARBIDOPA\LEVODOPA [Concomitant]
     Active Substance: CARBIDOPA\LEVODOPA
     Indication: Product used for unknown indication
     Dosage: 25/100 EVERY 3 HOURS; THREE TABLETS THREE TIMES PER DAY
     Route: 065

REACTIONS (21)
  - Lung disorder [Unknown]
  - Product residue present [Unknown]
  - Product physical issue [Unknown]
  - Product after taste [Unknown]
  - Mucosal discolouration [Unknown]
  - Product residue present [Unknown]
  - Wheezing [Not Recovered/Not Resolved]
  - Discomfort [Not Recovered/Not Resolved]
  - Respiratory disorder [Not Recovered/Not Resolved]
  - Sleep disorder [Not Recovered/Not Resolved]
  - Blood glucose abnormal [Not Recovered/Not Resolved]
  - Drug ineffective [Unknown]
  - Saliva discolouration [Not Recovered/Not Resolved]
  - Incorrect dose administered [Unknown]
  - Parkinson^s disease [Not Recovered/Not Resolved]
  - Oropharyngeal discomfort [Unknown]
  - Oropharyngeal discomfort [Not Recovered/Not Resolved]
  - Blood pressure abnormal [Not Recovered/Not Resolved]
  - Cough [Unknown]
  - Cough [Unknown]
  - Dyskinesia [Not Recovered/Not Resolved]
